FAERS Safety Report 24866873 (Version 3)
Quarter: 2025Q1

REPORT INFORMATION
  Report Type: Report from Study
  Country: PK (occurrence: PK)
  Receive Date: 20250121
  Receipt Date: 20250218
  Transmission Date: 20250408
  Serious: Yes (Death)
  Sender: ROCHE
  Company Number: PK-ROCHE-10000184583

PATIENT
  Age: 67 Year
  Sex: Female

DRUGS (1)
  1. HERCEPTIN [Suspect]
     Active Substance: TRASTUZUMAB
     Indication: Breast cancer
     Route: 058
     Dates: start: 20241118

REACTIONS (2)
  - Breast cancer [Fatal]
  - Disease progression [Fatal]
